FAERS Safety Report 9845129 (Version 1)
Quarter: 2014Q1

REPORT INFORMATION
  Report Type: Spontaneous
  Country: GB (occurrence: None)
  Receive Date: 20140122
  Receipt Date: 20140122
  Transmission Date: 20141002
  Serious: Yes (Other)
  Sender: FDA-Public Use
  Company Number: NGX_02198_2014

PATIENT
  Age: 40 Year
  Sex: Female

DRUGS (2)
  1. QUTENZA [Suspect]
     Indication: COMPLEX REGIONAL PAIN SYNDROME
     Dosage: 1 DF (FIRST TREATMENT) TOPICAL
     Dates: start: 20140108
  2. IBUPROFEN [Concomitant]

REACTIONS (5)
  - Application site erythema [None]
  - Pruritus generalised [None]
  - Urticaria [None]
  - Malaise [None]
  - Hypersensitivity [None]
